FAERS Safety Report 18793096 (Version 1)
Quarter: 2021Q1

REPORT INFORMATION
  Report Type: Spontaneous
  Country: US (occurrence: US)
  Receive Date: 20210126
  Receipt Date: 20210126
  Transmission Date: 20210419
  Serious: Yes (Hospitalization)
  Sender: FDA-Public Use
  Company Number: None

PATIENT
  Age: 64 Year
  Sex: Female

DRUGS (21)
  1. ESBRIET [Suspect]
     Active Substance: PIRFENIDONE
     Indication: IDIOPATHIC PULMONARY FIBROSIS
     Route: 048
     Dates: start: 20181130
  2. FUROSEMIDE. [Concomitant]
     Active Substance: FUROSEMIDE
  3. GABAPENTIN. [Concomitant]
     Active Substance: GABAPENTIN
  4. SILDENAFIL. [Concomitant]
     Active Substance: SILDENAFIL
  5. DEFETILDE [Concomitant]
  6. FAMOTIDINE. [Concomitant]
     Active Substance: FAMOTIDINE
  7. HUMALOG [Concomitant]
     Active Substance: INSULIN LISPRO
  8. XARELTO [Concomitant]
     Active Substance: RIVAROXABAN
  9. NYSTATIN. [Concomitant]
     Active Substance: NYSTATIN
  10. LEVOCETIRIZI [Concomitant]
  11. OMEPRAZOLE. [Concomitant]
     Active Substance: OMEPRAZOLE
  12. PREDNISONE. [Concomitant]
     Active Substance: PREDNISONE
  13. JANUVIA [Concomitant]
     Active Substance: SITAGLIPTIN PHOSPHATE
  14. NYSTOP [Concomitant]
     Active Substance: NYSTATIN
  15. METOPROL SUC ER [Concomitant]
     Active Substance: METOPROLOL SUCCINATE
  16. METOPROL TAR [Concomitant]
  17. PANTOPRAZOLE [Concomitant]
     Active Substance: PANTOPRAZOLE
  18. ISOSORB DIN [Concomitant]
     Active Substance: ISOSORBIDE DINITRATE
  19. POT CL MICRO [Concomitant]
  20. SPIRONOLACT [Concomitant]
     Active Substance: SPIRONOLACTONE
  21. VITAMIN D [Concomitant]
     Active Substance: VITAMIN D NOS

REACTIONS (3)
  - Diarrhoea [None]
  - Hypotension [None]
  - Vomiting [None]

NARRATIVE: CASE EVENT DATE: 20201226
